FAERS Safety Report 12249740 (Version 1)
Quarter: 2016Q2

REPORT INFORMATION
  Report Type: Spontaneous
  Country: None (occurrence: None)
  Receive Date: 20160407
  Receipt Date: 20160407
  Transmission Date: 20160815
  Serious: No
  Sender: FDA-Public Use
  Company Number: None

PATIENT
  Age: 60 Year
  Sex: Female

DRUGS (1)
  1. HARVONI [Suspect]
     Active Substance: LEDIPASVIR\SOFOSBUVIR
     Indication: COLON CANCER
     Dosage: 90MG-400MG QD ORAL
     Route: 048
     Dates: start: 201603

REACTIONS (2)
  - Fatigue [None]
  - Lethargy [None]

NARRATIVE: CASE EVENT DATE: 20160402
